FAERS Safety Report 8393669-0 (Version None)
Quarter: 2012Q2

REPORT INFORMATION
  Report Type: 
  Country: None (occurrence: None)
  Receive Date: 20120530
  Receipt Date: 20120523
  Transmission Date: 20120825
  Serious: No
  Sender: FDA-Public Use
  Company Number: US-BIOGENIDEC-2012BI003180

PATIENT
  Sex: Female

DRUGS (4)
  1. IBUPROFEN [Concomitant]
     Indication: OPTIC NEURITIS
  2. ACID REDUCER [Concomitant]
     Indication: DYSPEPSIA
  3. VITAMIN D [Concomitant]
     Indication: MULTIPLE SCLEROSIS
  4. TYSABRI [Suspect]
     Indication: MULTIPLE SCLEROSIS
     Route: 042
     Dates: start: 20111229

REACTIONS (7)
  - PARAESTHESIA [None]
  - EYE INFLAMMATION [None]
  - VISUAL IMPAIRMENT [None]
  - FATIGUE [None]
  - HYPOAESTHESIA [None]
  - ANXIETY [None]
  - OPTIC NEURITIS [None]
